FAERS Safety Report 9642205 (Version 1)
Quarter: 2013Q4

REPORT INFORMATION
  Report Type: Spontaneous
  Country: FR (occurrence: FR)
  Receive Date: 20131024
  Receipt Date: 20131024
  Transmission Date: 20140711
  Serious: Yes (Other)
  Sender: FDA-Public Use
  Company Number: FR-AMGEN-FRASP2013074716

PATIENT
  Age: 66 Year
  Sex: Female

DRUGS (8)
  1. ENBREL [Suspect]
     Indication: PRODUCT USED FOR UNKNOWN INDICATION
     Dosage: 50 MG, WEEKLY
     Route: 058
     Dates: start: 200909, end: 201306
  2. REMICADE [Suspect]
     Indication: PRODUCT USED FOR UNKNOWN INDICATION
     Dosage: UNK
     Route: 042
     Dates: start: 20130613, end: 20130626
  3. CALCIUM [Concomitant]
     Dosage: UNK
  4. INEXIUM                            /01479302/ [Concomitant]
     Dosage: UNK
  5. SERETIDE [Concomitant]
     Dosage: UNK
  6. XAMIOL [Concomitant]
     Dosage: UNK
  7. DAIVOBET [Concomitant]
     Dosage: UNK
  8. EFFERALGAN                         /00020001/ [Concomitant]
     Dosage: UNK

REACTIONS (3)
  - Adenocarcinoma of colon [Unknown]
  - Drug ineffective [Unknown]
  - Iron deficiency anaemia [Unknown]
